FAERS Safety Report 7139403-3 (Version None)
Quarter: 2010Q4

REPORT INFORMATION
  Report Type: 
  Country: None (occurrence: None)
  Receive Date: 20101206
  Receipt Date: 20101123
  Transmission Date: 20110411
  Serious: Yes (Other)
  Sender: FDA-Public Use
  Company Number: BR-PFIZER INC-2010154414

PATIENT
  Sex: Female

DRUGS (8)
  1. LYRICA [Suspect]
     Indication: FIBROMYALGIA
     Dosage: 75 MG, 1X/DAY
     Route: 048
  2. METFORMIN HYDROCHLORIDE [Concomitant]
     Indication: DIABETES MELLITUS
     Dosage: UNK
  3. VASOPRIL /BRA/ [Concomitant]
     Indication: HYPERTENSION
     Dosage: UNK
  4. INDAPAMIDE [Concomitant]
     Indication: HYPERTENSION
     Dosage: UNK
  5. CRESTOR [Concomitant]
     Dosage: UNK
  6. PURAN T4 [Concomitant]
     Indication: THYROID DISORDER
     Dosage: UNK
  7. AMITRIPTYLINE HYDROCHLORIDE [Concomitant]
     Dosage: UNK
  8. CHONDROITIN/GLUCOSAMINE [Concomitant]
     Dosage: UNK

REACTIONS (3)
  - EYE SWELLING [None]
  - HYPERTENSIVE CRISIS [None]
  - SWELLING FACE [None]
